FAERS Safety Report 15148723 (Version 1)
Quarter: 2018Q3

REPORT INFORMATION
  Report Type: Spontaneous
  Country: SA (occurrence: SA)
  Receive Date: 20180716
  Receipt Date: 20180716
  Transmission Date: 20181010
  Serious: Yes (Death, Hospitalization, Other)
  Sender: FDA-Public Use
  Company Number: SA-BAYER-2018-133033

PATIENT
  Age: 42 Year
  Sex: Female

DRUGS (1)
  1. YASMIN [Suspect]
     Active Substance: DROSPIRENONE\ETHINYL ESTRADIOL
     Route: 048

REACTIONS (6)
  - Cauda equina syndrome [None]
  - Pneumonia [Fatal]
  - Deep vein thrombosis [Recovering/Resolving]
  - Pelvic venous thrombosis [Recovering/Resolving]
  - Vena cava thrombosis [Recovering/Resolving]
  - Acute respiratory distress syndrome [Fatal]
